FAERS Safety Report 5914592-4 (Version None)
Quarter: 2008Q4

REPORT INFORMATION
  Report Type: 
  Country: None (occurrence: None)
  Receive Date: 20081010
  Receipt Date: 20080930
  Transmission Date: 20090506
  Serious: Yes (Hospitalization)
  Sender: FDA-Public Use
  Company Number: US-SOLVAY-00208004619

PATIENT
  Sex: Male
  Weight: 96 kg

DRUGS (12)
  1. LIPITOR [Concomitant]
     Indication: HYPERLIPIDAEMIA
     Dosage: DAILY DOSE: 10 MILLIGRAM(S)
     Route: 048
  2. ANDROGEL [Suspect]
     Indication: BLOOD TESTOSTERONE DECREASED
     Dosage: DAILY DOSE:  UNKNOWN
     Route: 062
  3. ANDROGEL [Suspect]
     Dosage: DAILY DOSE: 15 GRAM(S)
     Route: 062
  4. ANDROGEL [Suspect]
     Dosage: DAILY DOSE: REDUCED DOSE OVER A FEW WEEKS
     Route: 062
  5. ANDROGEL [Suspect]
     Dosage: DAILY DOSE: 5 GRAM(S)
     Route: 062
     Dates: end: 20071211
  6. ANDROGEL [Suspect]
     Dosage: DAILY DOSE: 10 GRAM(S)
     Route: 062
     Dates: start: 20080101
  7. AVODART [Suspect]
     Indication: HORMONE SUPPRESSION THERAPY
     Dosage: DAILY DOSE:  UNKNOWN
     Route: 048
  8. AVODART [Suspect]
     Dosage: DAILY DOSE: 2 DOSAGE FORM
     Route: 048
  9. AVODART [Suspect]
     Dosage: DAILY DOSE: 1 DOSAGE FORM
     Route: 048
     Dates: end: 20071211
  10. ARIMIDEX [Suspect]
     Indication: HORMONE SUPPRESSION THERAPY
     Dosage: DAILY DOSE:  UNKNOWN
     Route: 048
  11. ARIMIDEX [Suspect]
     Dosage: DAILY DOSE: 2 DOSAGE FORM
     Route: 048
  12. ARIMIDEX [Suspect]
     Dosage: DAILY DOSE: 1 DOSAGE FORM
     Route: 048
     Dates: end: 20071211

REACTIONS (13)
  - ANAEMIA [None]
  - BLOOD TESTOSTERONE INCREASED [None]
  - GASTRITIS [None]
  - GASTROOESOPHAGEAL REFLUX DISEASE [None]
  - HYPERCOAGULATION [None]
  - ILEUS PARALYTIC [None]
  - MESENTERIC VASCULAR INSUFFICIENCY [None]
  - MESENTERIC VEIN THROMBOSIS [None]
  - ORAL CANDIDIASIS [None]
  - PLEURAL EFFUSION [None]
  - PORTAL VEIN THROMBOSIS [None]
  - PYREXIA [None]
  - WHITE BLOOD CELL COUNT INCREASED [None]
